FAERS Safety Report 22251882 (Version 1)
Quarter: 2023Q2

REPORT INFORMATION
  Report Type: Spontaneous
  Country: US (occurrence: US)
  Receive Date: 20230425
  Receipt Date: 20230425
  Transmission Date: 20230721
  Serious: No
  Sender: FDA-Public Use
  Company Number: US-ALKERMES INC.-ALK-2023-001667

PATIENT
  Age: 26 Year
  Sex: Female
  Weight: 105.22 kg

DRUGS (1)
  1. ARISTADA [Suspect]
     Active Substance: ARIPIPRAZOLE LAUROXIL
     Indication: Bipolar I disorder
     Dosage: 441 MILLIGRAM, QMO
     Route: 030

REACTIONS (2)
  - Micturition urgency [Unknown]
  - Off label use [Not Recovered/Not Resolved]
